FAERS Safety Report 17087300 (Version 1)
Quarter: 2019Q4

REPORT INFORMATION
  Report Type: Spontaneous
  Country: JP (occurrence: JP)
  Receive Date: 20191128
  Receipt Date: 20191128
  Transmission Date: 20200122
  Serious: Yes (Other)
  Sender: FDA-Public Use
  Company Number: JP-PFIZER INC-2019512121

PATIENT
  Age: 64 Year
  Sex: Male
  Weight: 71 kg

DRUGS (12)
  1. SAMSCA [Suspect]
     Active Substance: TOLVAPTAN
     Indication: CONGENITAL CYSTIC KIDNEY DISEASE
     Dosage: 60 MG/DAY (DIVIDED 2 DOSES), UNKNOWN FREQ.
     Route: 048
     Dates: start: 20151030, end: 20151101
  2. SAMSCA [Suspect]
     Active Substance: TOLVAPTAN
     Dosage: 90 MG/DAY (DIVIDED 2 DOSES), UNKNOWN FREQ.
     Route: 048
     Dates: start: 20161110, end: 20170308
  3. SAMSCA [Suspect]
     Active Substance: TOLVAPTAN
     Dosage: 120 MG/DAY (DIVIDED 2 DOSES), UNKNOWN FREQ.
     Route: 048
     Dates: start: 20170309
  4. LIPITOR [Suspect]
     Active Substance: ATORVASTATIN CALCIUM
     Dosage: 5 MG, 1X/DAY
     Route: 048
     Dates: start: 20170706, end: 20180404
  5. SAMSCA [Suspect]
     Active Substance: TOLVAPTAN
     Dosage: 60 MG/DAY (DIVIDED 2 DOSES), UNKNOWN FREQ.
     Route: 048
     Dates: start: 20151104, end: 20161109
  6. FEBURIC [Concomitant]
     Active Substance: FEBUXOSTAT
     Dosage: UNK UNK, UNKNOWN FREQ.
     Route: 065
  7. SAMSCA [Suspect]
     Active Substance: TOLVAPTAN
     Dosage: 90 MG/DAY (DIVIDED 2 DOSES), UNKNOWN FREQ.
     Route: 048
  8. SAMSCA [Suspect]
     Active Substance: TOLVAPTAN
     Dosage: 90 MG/DAY, DIVIDED 2 DOSES (EACH DOSE UNKNOWN), UNKNOWN FREQ.
     Route: 048
     Dates: start: 20180310, end: 20180801
  9. NORVASC [Concomitant]
     Active Substance: AMLODIPINE BESYLATE
     Dosage: UNK UNK, UNKNOWN FREQ.
     Route: 065
  10. TAKEPRON [Concomitant]
     Active Substance: LANSOPRAZOLE
     Dosage: UNK UNK, UNKNOWN FREQ.
     Route: 065
  11. SAMSCA [Suspect]
     Active Substance: TOLVAPTAN
     Dosage: 120 MG/DAY, DIVIDED 2 DOSES (EACH DOSE UNKNOWN), UNKNOWN FREQ.
     Route: 048
     Dates: start: 20180802
  12. MICOMBI COMBINATION [Concomitant]
     Active Substance: HYDROCHLOROTHIAZIDE\TELMISARTAN
     Dosage: UNK UNK, UNKNOWN FREQ.
     Route: 065

REACTIONS (2)
  - Weight increased [Unknown]
  - Gamma-glutamyltransferase increased [Recovered/Resolved]

NARRATIVE: CASE EVENT DATE: 20170802
